FAERS Safety Report 12674434 (Version 1)
Quarter: 2016Q3

REPORT INFORMATION
  Report Type: Spontaneous
  Country: US (occurrence: US)
  Receive Date: 20160822
  Receipt Date: 20160822
  Transmission Date: 20161109
  Serious: No
  Sender: FDA-Public Use
  Company Number: US-BEH-2016059134

PATIENT
  Sex: Female
  Weight: 71.67 kg

DRUGS (21)
  1. ZEMAIRA [Suspect]
     Active Substance: .ALPHA.1-PROTEINASE INHIBITOR HUMAN
     Indication: ALPHA-1 ANTI-TRYPSIN DEFICIENCY
     Dosage: AS DIRECTED
     Route: 042
  2. PREDNISONE. [Concomitant]
     Active Substance: PREDNISONE
  3. ZOFRAN [Concomitant]
     Active Substance: ONDANSETRON HYDROCHLORIDE
  4. GLUCAGON. [Concomitant]
     Active Substance: GLUCAGON
  5. ATIVAN [Concomitant]
     Active Substance: LORAZEPAM
  6. NORMAL SALINE [Concomitant]
     Active Substance: SODIUM CHLORIDE
  7. ZEMAIRA [Suspect]
     Active Substance: .ALPHA.1-PROTEINASE INHIBITOR HUMAN
     Indication: TYPE 1 DIABETES MELLITUS
  8. DIFLUCAN [Concomitant]
     Active Substance: FLUCONAZOLE
  9. HUMALOG [Concomitant]
     Active Substance: INSULIN LISPRO
  10. LANTUS [Concomitant]
     Active Substance: INSULIN GLARGINE
  11. ADVIL [Concomitant]
     Active Substance: IBUPROFEN
  12. ADULT ASPIRIN [Concomitant]
  13. IMITREX [Concomitant]
     Active Substance: SUMATRIPTAN SUCCINATE
  14. LEVOTHROID [Concomitant]
     Active Substance: LEVOTHYROXINE SODIUM
  15. DIPHENHYDRAMINE. [Concomitant]
     Active Substance: DIPHENHYDRAMINE
  16. EPIPEN [Concomitant]
     Active Substance: EPINEPHRINE
  17. TRAMADOL. [Concomitant]
     Active Substance: TRAMADOL
  18. ESTRADIOL. [Concomitant]
     Active Substance: ESTRADIOL
  19. XOPENEX [Concomitant]
     Active Substance: LEVALBUTEROL HYDROCHLORIDE
  20. SODIUM CHLORIDE. [Concomitant]
     Active Substance: SODIUM CHLORIDE
  21. LMX [Concomitant]
     Active Substance: LIDOCAINE

REACTIONS (2)
  - Influenza like illness [Unknown]
  - Nasopharyngitis [Not Recovered/Not Resolved]
